FAERS Safety Report 19211827 (Version 5)
Quarter: 2022Q1

REPORT INFORMATION
  Report Type: Spontaneous
  Country: PA (occurrence: PA)
  Receive Date: 20210504
  Receipt Date: 20220127
  Transmission Date: 20220423
  Serious: Yes (Hospitalization, Other)
  Sender: FDA-Public Use
  Company Number: PA-PFIZER INC-2021443297

PATIENT
  Age: 57 Year
  Sex: Female
  Weight: 64.399 kg

DRUGS (6)
  1. XELJANZ [Suspect]
     Active Substance: TOFACITINIB CITRATE
     Dosage: 5 MG, 2X/DAY
     Route: 048
     Dates: start: 20210319
  2. XELJANZ [Suspect]
     Active Substance: TOFACITINIB CITRATE
     Dosage: 5 MG, 2X/DAY
     Dates: start: 20210301, end: 20211010
  3. ATENOLOL [Concomitant]
     Active Substance: ATENOLOL
     Dosage: 0.5 DF, DAILY
  4. IRBESARTAN [Concomitant]
     Active Substance: IRBESARTAN
     Dosage: 300MG HALF MORNING, HALF AFTERNOON
  5. CONTROLIP [ATORVASTATIN CALCIUM] [Concomitant]
     Dosage: 250 MG, DAILY (ONE EVERY NIGHT)
     Route: 048
     Dates: start: 20200819
  6. CARDIOTEN [ATENOLOL] [Concomitant]
     Dosage: UNK

REACTIONS (19)
  - Renal pain [Not Recovered/Not Resolved]
  - Nephrolithiasis [Not Recovered/Not Resolved]
  - Blood urine present [Unknown]
  - Blood cholesterol increased [Unknown]
  - Autoantibody positive [Unknown]
  - Adenocarcinoma [Unknown]
  - Aspartate aminotransferase increased [Unknown]
  - Alanine aminotransferase increased [Unknown]
  - Red blood cell count decreased [Unknown]
  - Lymphocyte count increased [Unknown]
  - Neutrophil count decreased [Unknown]
  - Red blood cell sedimentation rate increased [Unknown]
  - Carbon dioxide decreased [Unknown]
  - Blood glucose increased [Unknown]
  - Haemoglobin decreased [Unknown]
  - Haematocrit decreased [Unknown]
  - Lymphocyte count decreased [Unknown]
  - Neutrophil count increased [Unknown]
  - Basophil count increased [Unknown]

NARRATIVE: CASE EVENT DATE: 20210414
